FAERS Safety Report 9732246 (Version 1)
Quarter: 2013Q4

REPORT INFORMATION
  Report Type: Spontaneous
  Country: US (occurrence: None)
  Receive Date: 20131203
  Receipt Date: 20131203
  Transmission Date: 20140711
  Serious: Yes (Death)
  Sender: FDA-Public Use
  Company Number: US-ALKEM-000320

PATIENT
  Age: 51 Year
  Sex: Female

DRUGS (2)
  1. AMLODIPINE (AMLODIPINE) [Suspect]
  2. ATENOLOL/CHLORTHALIDONE (ATENOLOL/CHLORTHALIDONE) [Suspect]

REACTIONS (2)
  - Completed suicide [None]
  - Exposure via ingestion [None]
